FAERS Safety Report 7064542 (Version 6)
Quarter: 2021Q1

REPORT INFORMATION
  Report Type: Spontaneous
  Country: IT (occurrence: IT)
  Receive Date: 20090727
  Receipt Date: 20210119
  Transmission Date: 20210420
  Serious: Yes (Death, Hospitalization, Other)
  Sender: FDA-Public Use
  Company Number: PHHY2009IT30691

PATIENT
  Age: 61 Year
  Sex: Female

DRUGS (7)
  1. MYCOPHENOLATE MOFETIL. [Suspect]
     Active Substance: MYCOPHENOLATE MOFETIL
     Indication: IMMUNOSUPPRESSANT DRUG THERAPY
  2. PREDNISONE. [Suspect]
     Active Substance: PREDNISONE
     Indication: IMMUNOSUPPRESSANT DRUG THERAPY
  3. TACROLIMUS. [Concomitant]
     Active Substance: TACROLIMUS
     Indication: IMMUNOSUPPRESSION
     Dosage: UNK
     Route: 065
  4. MYCOPHENOLATE MOFETIL. [Suspect]
     Active Substance: MYCOPHENOLATE MOFETIL
     Indication: LIVER TRANSPLANT
     Dosage: UNK
     Route: 065
     Dates: start: 2003, end: 2003
  5. CYCLOSPORINE. [Suspect]
     Active Substance: CYCLOSPORINE
     Indication: LIVER TRANSPLANT
     Dosage: UNK
     Route: 065
     Dates: start: 2003, end: 2003
  6. CYCLOSPORINE. [Suspect]
     Active Substance: CYCLOSPORINE
     Indication: IMMUNOSUPPRESSANT DRUG THERAPY
  7. PREDNISONE. [Suspect]
     Active Substance: PREDNISONE
     Indication: LIVER TRANSPLANT
     Dosage: UNK
     Route: 065
     Dates: start: 2003, end: 2003

REACTIONS (13)
  - Pyrexia [Fatal]
  - Pleural effusion [Fatal]
  - Cachexia [Fatal]
  - Fusarium infection [Fatal]
  - Hypogammaglobulinaemia [Fatal]
  - Cytomegalovirus infection [Recovered/Resolved]
  - Enterococcal infection [Fatal]
  - Hepatic function abnormal [Fatal]
  - Leukopenia [Fatal]
  - Neutropenia [Unknown]
  - Hepatic failure [Fatal]
  - B-cell lymphoma [Fatal]
  - Pulmonary mass [Fatal]

NARRATIVE: CASE EVENT DATE: 2003
